FAERS Safety Report 6247089-5 (Version None)
Quarter: 2009Q2

REPORT INFORMATION
  Report Type: 
  Country: None (occurrence: None)
  Receive Date: 20090624
  Receipt Date: 20090624
  Transmission Date: 20091009
  Serious: Yes (Other)
  Sender: FDA-Public Use
  Company Number: None

PATIENT
  Age: 61 Year
  Sex: Female
  Weight: 52.6173 kg

DRUGS (1)
  1. LATISSE [Suspect]
     Dosage: ONE DROP EVERY NIGHT

REACTIONS (1)
  - ERYTHEMA OF EYELID [None]
